FAERS Safety Report 7905908-8 (Version None)
Quarter: 2011Q4

REPORT INFORMATION
  Report Type: 
  Country: None (occurrence: None)
  Receive Date: 20111110
  Receipt Date: 20111031
  Transmission Date: 20120403
  Serious: Yes (Other)
  Sender: FDA-Public Use
  Company Number: US-JNJFOC-20111013393

PATIENT

DRUGS (2)
  1. REMICADE [Suspect]
     Indication: PRODUCT USED FOR UNKNOWN INDICATION
     Route: 042
     Dates: start: 20110708
  2. REMICADE [Suspect]
     Route: 042
     Dates: start: 20050815

REACTIONS (1)
  - LUNG NEOPLASM MALIGNANT [None]
